FAERS Safety Report 4501222-1 (Version None)
Quarter: 2004Q4

REPORT INFORMATION
  Report Type: 
  Country: None (occurrence: None)
  Receive Date: 20041115
  Receipt Date: 20041108
  Transmission Date: 20050328
  Serious: Yes (Other)
  Sender: FDA-Public Use
  Company Number: PHBS2004BR15244

PATIENT
  Age: 47 Year
  Sex: Male

DRUGS (3)
  1. CYCLOSPORINE [Suspect]
     Indication: LIVER TRANSPLANT
     Dosage: 4 MG/KG/D
     Route: 065
     Dates: start: 19960627
  2. AZATHIOPRINE [Concomitant]
     Indication: LIVER TRANSPLANT
     Dosage: 2 MG/KG/D
     Route: 065
  3. METHYLPREDNISOLONE [Concomitant]
     Indication: LIVER TRANSPLANT
     Dosage: 1 G-20 MG -10 MG/D
     Route: 065

REACTIONS (4)
  - BLOOD URIC ACID ABNORMAL [None]
  - HYPERTENSION [None]
  - NEPHROLITHIASIS [None]
  - URINARY TRACT INFECTION [None]
